FAERS Safety Report 5901860-5 (Version None)
Quarter: 2008Q3

REPORT INFORMATION
  Report Type: 
  Country: None (occurrence: None)
  Receive Date: 20080929
  Receipt Date: 20080529
  Transmission Date: 20090109
  Serious: Yes (Hospitalization)
  Sender: FDA-Public Use
  Company Number: JP-BAYER-200810850BYL

PATIENT
  Age: 63 Year
  Sex: Female
  Weight: 41 kg

DRUGS (5)
  1. FLUDARA [Suspect]
     Indication: FOLLICLE CENTRE LYMPHOMA, FOLLICULAR GRADE I, II, III RECURRENT
     Dosage: TOTAL DAILY DOSE: 50 MG  UNIT DOSE: 10 MG
     Route: 048
     Dates: start: 20080327, end: 20080331
  2. RITUXAN [Concomitant]
     Indication: FOLLICLE CENTRE LYMPHOMA, FOLLICULAR GRADE I, II, III RECURRENT
     Dosage: TOTAL DAILY DOSE: 500 MG
     Route: 042
     Dates: start: 20080327, end: 20080327
  3. FLUCONAZOLE [Concomitant]
     Indication: PROPHYLAXIS
  4. COTRIM [Concomitant]
     Indication: PROPHYLAXIS
  5. GASPORT D [Concomitant]
     Indication: PROPHYLAXIS

REACTIONS (2)
  - NEUTROPHIL COUNT DECREASED [None]
  - PLATELET COUNT DECREASED [None]
